FAERS Safety Report 7694301-1 (Version None)
Quarter: 2011Q3

REPORT INFORMATION
  Report Type: 
  Country: None (occurrence: None)
  Receive Date: 20110819
  Receipt Date: 20110811
  Transmission Date: 20111222
  Serious: Yes (Life-Threatening)
  Sender: FDA-Public Use
  Company Number: CA-ALEXION-A201101147

PATIENT
  Sex: Female

DRUGS (1)
  1. SOLIRIS [Suspect]
     Indication: PAROXYSMAL NOCTURNAL HAEMOGLOBINURIA
     Dosage: 900 MG, Q2W
     Route: 042
     Dates: start: 20090612

REACTIONS (4)
  - HAEMORRHAGE [None]
  - SPLENIC RUPTURE [None]
  - SPLENIC VEIN THROMBOSIS [None]
  - CARDIAC ARREST [None]
